FAERS Safety Report 8257845-X (Version None)
Quarter: 2012Q2

REPORT INFORMATION
  Report Type: 
  Country: None (occurrence: None)
  Receive Date: 20120404
  Receipt Date: 20120327
  Transmission Date: 20120825
  Serious: Yes (Hospitalization)
  Sender: FDA-Public Use
  Company Number: FR-SP-2012-03433

PATIENT
  Sex: Male

DRUGS (7)
  1. DIAMICRON [Concomitant]
  2. ASPIRIN [Concomitant]
  3. PARIET (RABEPRAZOL) [Concomitant]
  4. RAMIPRIL [Concomitant]
  5. CRESTOR (ROSUVASTATINE) [Concomitant]
  6. IMMUCYST [Suspect]
     Indication: BLADDER CANCER
     Route: 042
     Dates: start: 20111107, end: 20111107
  7. BISOPROLOL FUMARATE [Concomitant]

REACTIONS (7)
  - PYREXIA [None]
  - ASTHENIA [None]
  - WEIGHT DECREASED [None]
  - DECREASED APPETITE [None]
  - BOVINE TUBERCULOSIS [None]
  - COUGH [None]
  - NIGHT SWEATS [None]
